FAERS Safety Report 20850124 (Version 1)
Quarter: 2022Q2

REPORT INFORMATION
  Report Type: Spontaneous
  Country: IT (occurrence: IT)
  Receive Date: 20220519
  Receipt Date: 20220519
  Transmission Date: 20220720
  Serious: Yes (Hospitalization)
  Sender: FDA-Public Use
  Company Number: IT-NOVARTISPH-NVSC2022IT113970

PATIENT
  Age: 57 Year
  Sex: Female

DRUGS (5)
  1. AZITHROMYCIN DIHYDRATE [Suspect]
     Active Substance: AZITHROMYCIN DIHYDRATE
     Indication: Mycobacterium avium complex infection
     Dosage: 500 MG, QD
     Route: 065
  2. SULFAMETHOXAZOLE\TRIMETHOPRIM [Suspect]
     Active Substance: SULFAMETHOXAZOLE\TRIMETHOPRIM
     Indication: Pneumonia
     Dosage: 20/75 MG/KG, QD
     Route: 042
  3. METHYLPREDNISOLONE [Suspect]
     Active Substance: METHYLPREDNISOLONE
     Indication: Pneumonia
     Dosage: 40 MG, Q12H
     Route: 042
  4. ETHAMBUTOL [Suspect]
     Active Substance: ETHAMBUTOL HYDROCHLORIDE
     Indication: Mycobacterium avium complex infection
     Dosage: 1200 MG, QD
     Route: 065
  5. GANCICLOVIR [Suspect]
     Active Substance: GANCICLOVIR
     Indication: Cytomegalovirus infection
     Dosage: 5 MG/KG, Q12H
     Route: 042

REACTIONS (1)
  - Anaemia [Unknown]
